FAERS Safety Report 24076047 (Version 1)
Quarter: 2024Q3

REPORT INFORMATION
  Report Type: Spontaneous
  Country: US (occurrence: US)
  Receive Date: 20240710
  Receipt Date: 20240710
  Transmission Date: 20241016
  Serious: No
  Sender: BRISTOL MYERS SQUIBB
  Company Number: US-BRISTOL-MYERS SQUIBB COMPANY-2024-109199

PATIENT
  Age: 52 Year
  Sex: Female

DRUGS (1)
  1. POMALYST [Suspect]
     Active Substance: POMALIDOMIDE
     Indication: Plasma cell myeloma
     Dosage: FREQ- ONCE DAILY FOR 21 DAYS
     Route: 048
     Dates: start: 201608

REACTIONS (3)
  - Product prescribing issue [Unknown]
  - Off label use [Unknown]
  - Therapy interrupted [Unknown]
